FAERS Safety Report 6698286-6 (Version None)
Quarter: 2010Q2

REPORT INFORMATION
  Report Type: 
  Country: None (occurrence: None)
  Receive Date: 20100426
  Receipt Date: 20100426
  Transmission Date: 20101027
  Serious: No
  Sender: FDA-Public Use
  Company Number: None

PATIENT
  Age: 48 Year
  Sex: Male
  Weight: 855.9376 kg

DRUGS (1)
  1. OMEPRAZOLE [Suspect]
     Dosage: 1 1 PO
     Route: 048

REACTIONS (1)
  - PRODUCT QUALITY ISSUE [None]
